FAERS Safety Report 16304020 (Version 1)
Quarter: 2019Q2

REPORT INFORMATION
  Report Type: Spontaneous
  Country: IT (occurrence: IT)
  Receive Date: 20190513
  Receipt Date: 20190513
  Transmission Date: 20190711
  Serious: Yes (Hospitalization)
  Sender: FDA-Public Use
  Company Number: IT-PANACEA BIOTEC LTD-2019-IT-000026

PATIENT
  Age: 18 Year
  Sex: Male

DRUGS (1)
  1. TACROLIMUS. [Suspect]
     Active Substance: TACROLIMUS
     Indication: PROPHYLAXIS AGAINST TRANSPLANT REJECTION
     Route: 065

REACTIONS (7)
  - Asthenia [Unknown]
  - Headache [Unknown]
  - Sudden visual loss [Unknown]
  - Purtscher retinopathy [Unknown]
  - Hypertension [Unknown]
  - Drug level increased [Unknown]
  - Deafness [Unknown]
